FAERS Safety Report 10086977 (Version 2)
Quarter: 2014Q2

REPORT INFORMATION
  Report Type: Report from Study
  Country: BR (occurrence: BR)
  Receive Date: 20140418
  Receipt Date: 20140526
  Transmission Date: 20141212
  Serious: Yes (Other)
  Sender: FDA-Public Use
  Company Number: PHHY2014BR047340

PATIENT
  Age: 12 Year
  Sex: Female
  Weight: 46 kg

DRUGS (5)
  1. RITALINA [Suspect]
     Indication: PSYCHOMOTOR HYPERACTIVITY
     Dosage: 1.5 DF, BID ( AT 12 PM AND 3 PM)
  2. RITALINA [Suspect]
     Dosage: 2 DF, BID (AT 12 PM AND AT 16 PM)
  3. RITALIN LA [Suspect]
     Dosage: UNK UKN, UNK
  4. CONCERTA [Suspect]
     Dosage: UNK UKN, UNK
  5. RISPERIDONE [Concomitant]
     Indication: AGITATION
     Dosage: 0.5 DF, DAILY

REACTIONS (5)
  - Ovarian cyst [Unknown]
  - Feeling of despair [Unknown]
  - Menstruation irregular [Unknown]
  - Weight decreased [Unknown]
  - Drug effect decreased [Unknown]
